FAERS Safety Report 20126768 (Version 1)
Quarter: 2021Q4

REPORT INFORMATION
  Report Type: Spontaneous
  Country: GB (occurrence: GB)
  Receive Date: 20211129
  Receipt Date: 20211129
  Transmission Date: 20220304
  Serious: Yes (Disabling)
  Sender: FDA-Public Use
  Company Number: None

PATIENT
  Age: 61 Year
  Sex: Male

DRUGS (5)
  1. QUTENZA [Suspect]
     Active Substance: CAPSAICIN
     Indication: Allodynia
     Dosage: 1 DOSAGE FORM
     Route: 062
     Dates: start: 20170727, end: 20180927
  2. QUTENZA [Suspect]
     Active Substance: CAPSAICIN
     Dosage: 3 DOSAGE FORM
     Route: 062
     Dates: start: 20171116
  3. QUTENZA [Suspect]
     Active Substance: CAPSAICIN
     Dosage: UNK
     Route: 062
     Dates: start: 20180323
  4. QUTENZA [Suspect]
     Active Substance: CAPSAICIN
     Dosage: 2 DOSAGE FORM
     Route: 062
     Dates: start: 20180621
  5. QUTENZA [Suspect]
     Active Substance: CAPSAICIN
     Dosage: UNK
     Route: 062
     Dates: start: 20180927

REACTIONS (1)
  - Neuropathy peripheral [Unknown]
